FAERS Safety Report 11795525 (Version 2)
Quarter: 2015Q4

REPORT INFORMATION
  Report Type: Spontaneous
  Country: US (occurrence: US)
  Receive Date: 20151202
  Receipt Date: 20151209
  Transmission Date: 20160305
  Serious: Yes (Death, Hospitalization)
  Sender: FDA-Public Use
  Company Number: US-UNITED THERAPEUTICS-UNT-2015-011072

PATIENT
  Age: 61 Year
  Sex: Female
  Weight: 90.7 kg

DRUGS (7)
  1. ORENITRAM [Suspect]
     Active Substance: TREPROSTINIL
     Dosage: 3.5 MG, TID
     Route: 048
  2. ORENITRAM [Suspect]
     Active Substance: TREPROSTINIL
     Dosage: 3.5 MG, TID
     Route: 048
  3. ORENITRAM [Suspect]
     Active Substance: TREPROSTINIL
     Indication: PULMONARY ARTERIAL HYPERTENSION
     Dosage: 2.5 MG, TID
     Route: 048
     Dates: start: 20150324
  4. ORENITRAM [Suspect]
     Active Substance: TREPROSTINIL
     Dosage: UNK
     Route: 048
  5. ORENITRAM [Suspect]
     Active Substance: TREPROSTINIL
     Dosage: 7.875 MG, TID
     Route: 048
  6. ORENITRAM [Suspect]
     Active Substance: TREPROSTINIL
     Dosage: 3.25MG, TID
     Route: 048
  7. ORENITRAM [Suspect]
     Active Substance: TREPROSTINIL
     Dosage: UNK
     Route: 048

REACTIONS (18)
  - Hypotension [Fatal]
  - Headache [Unknown]
  - Sepsis [Fatal]
  - Malaise [Unknown]
  - Pain [Unknown]
  - Abdominal discomfort [Unknown]
  - Kidney infection [Fatal]
  - Renal failure [Unknown]
  - Arthropathy [Unknown]
  - Treatment noncompliance [Unknown]
  - Diarrhoea [Unknown]
  - Drug dose omission [Unknown]
  - Bone pain [Unknown]
  - Dehydration [Unknown]
  - Retching [Unknown]
  - Nausea [Unknown]
  - Respiratory failure [Unknown]
  - Fall [Unknown]

NARRATIVE: CASE EVENT DATE: 2015
